FAERS Safety Report 25302137 (Version 1)
Quarter: 2025Q2

REPORT INFORMATION
  Report Type: Spontaneous
  Country: US (occurrence: US)
  Receive Date: 20250512
  Receipt Date: 20250512
  Transmission Date: 20250717
  Serious: No
  Sender: AMGEN
  Company Number: US-AMGEN-USASP2025088586

PATIENT
  Sex: Female

DRUGS (1)
  1. AMJEVITA [Suspect]
     Active Substance: ADALIMUMAB-ATTO
     Indication: Product used for unknown indication
     Route: 065
     Dates: start: 20250503

REACTIONS (3)
  - Product communication issue [Unknown]
  - Device difficult to use [Unknown]
  - Arthritis [Unknown]

NARRATIVE: CASE EVENT DATE: 20250503
